FAERS Safety Report 10528320 (Version 1)
Quarter: 2014Q4

REPORT INFORMATION
  Report Type: Spontaneous
  Country: US (occurrence: US)
  Receive Date: 20141020
  Receipt Date: 20141020
  Transmission Date: 20150528
  Serious: No
  Sender: FDA-Public Use
  Company Number: US-GLAXOSMITHKLINE-US2014GSK008764

PATIENT
  Age: 71 Year
  Sex: Female

DRUGS (2)
  1. FLOVENT DISKUS [Suspect]
     Active Substance: FLUTICASONE PROPIONATE
     Indication: ASTHMA
     Dosage: 2 PUFF(S), BID
     Route: 055
     Dates: start: 20141007, end: 20141007
  2. VITAMINS [Concomitant]
     Active Substance: VITAMINS

REACTIONS (4)
  - Dyspnoea [Recovered/Resolved]
  - Nasal obstruction [Recovered/Resolved]
  - Fear [Recovered/Resolved]
  - Pharyngeal oedema [Recovered/Resolved]

NARRATIVE: CASE EVENT DATE: 20141007
